FAERS Safety Report 4729901-1 (Version None)
Quarter: 2005Q3

REPORT INFORMATION
  Report Type: 
  Country: None (occurrence: None)
  Receive Date: 20050729
  Receipt Date: 20050729
  Transmission Date: 20060218
  Serious: Yes (Death)
  Sender: FDA-Public Use
  Company Number: None

PATIENT
  Age: 81 Year
  Sex: Male
  Weight: 77.1115 kg

DRUGS (2)
  1. DURAGESIC-100 [Suspect]
     Indication: CANCER PAIN
     Dosage: EVERY 72 HRS CHANGE
     Dates: start: 20050401, end: 20050520
  2. DURAGESIC-100 [Suspect]
     Indication: LUNG NEOPLASM MALIGNANT
     Dosage: EVERY 72 HRS CHANGE
     Dates: start: 20050401, end: 20050520

REACTIONS (7)
  - CONFUSIONAL STATE [None]
  - DIZZINESS [None]
  - DYSPNOEA [None]
  - FATIGUE [None]
  - MENTAL IMPAIRMENT [None]
  - OVERDOSE [None]
  - SOMNOLENCE [None]
